FAERS Safety Report 21475833 (Version 3)
Quarter: 2023Q1

REPORT INFORMATION
  Report Type: Report from Study
  Country: US (occurrence: US)
  Receive Date: 20221019
  Receipt Date: 20230106
  Transmission Date: 20230417
  Serious: No
  Sender: FDA-Public Use
  Company Number: US-LUNDBECK-DKLU3052927

PATIENT
  Age: 57 Year
  Sex: Female
  Weight: 73.94 kg

DRUGS (1)
  1. VYEPTI [Suspect]
     Active Substance: EPTINEZUMAB-JJMR
     Indication: Migraine
     Route: 041
     Dates: start: 20220907

REACTIONS (5)
  - Migraine [Unknown]
  - Headache [Unknown]
  - Dysgeusia [Recovered/Resolved]
  - Infusion site hypoaesthesia [Recovered/Resolved]
  - Drug ineffective [Unknown]
